FAERS Safety Report 11301090 (Version 1)
Quarter: 2015Q3

REPORT INFORMATION
  Report Type: Spontaneous
  Country: US (occurrence: None)
  Receive Date: 20150722
  Receipt Date: 20150722
  Transmission Date: 20151125
  Serious: Yes (Other)
  Sender: FDA-Public Use
  Company Number: 54973 AE # 1622

PATIENT
  Age: 80 Year
  Sex: Female

DRUGS (1)
  1. HYLAND^S LEG CRAMPS TABLETS [Suspect]
     Active Substance: HOMEOPATHICS
     Indication: MUSCLE SPASMS
     Dosage: 2 TABS BY OUTH X 3 DAYS
     Route: 048

REACTIONS (1)
  - Dyspnoea [None]

NARRATIVE: CASE EVENT DATE: 20150708
